FAERS Safety Report 26195433 (Version 1)
Quarter: 2025Q4

REPORT INFORMATION
  Report Type: Spontaneous
  Country: GB (occurrence: GB)
  Receive Date: 20251224
  Receipt Date: 20251224
  Transmission Date: 20260118
  Serious: Yes (Hospitalization)
  Sender: MICRO LABS LIMITED
  Company Number: None

PATIENT
  Age: 88 Year
  Sex: Female
  Weight: 52 kg

DRUGS (4)
  1. AMOXICILLIN [Suspect]
     Active Substance: AMOXICILLIN
     Indication: Product used for unknown indication
     Dosage: (5 DAY COURSE RECOMMENDED)
     Dates: start: 20251211
  2. DOXYCYCLINE [Concomitant]
     Active Substance: DOXYCYCLINE
     Indication: Ill-defined disorder
     Dosage: TAKE 2 CAPSULES STRAIGHT AWAY AND THEN TAKE ONE...
     Dates: start: 20251211
  3. LOSARTAN [Concomitant]
     Active Substance: LOSARTAN
     Indication: Ill-defined disorder
     Dosage: TAKE ONE DAILY
     Dates: start: 20250327
  4. LERCANIDIPINE HYDROCHLORIDE [Concomitant]
     Active Substance: LERCANIDIPINE HYDROCHLORIDE
     Indication: Ill-defined disorder
     Dosage: TAKE ONE DAILY
     Dates: start: 20250415

REACTIONS (2)
  - Abdominal discomfort [Unknown]
  - Vomiting [Unknown]
